FAERS Safety Report 25856498 (Version 2)
Quarter: 2025Q4

REPORT INFORMATION
  Report Type: Report from Study
  Country: US (occurrence: US)
  Receive Date: 20250929
  Receipt Date: 20251216
  Transmission Date: 20260118
  Serious: Yes (Other)
  Sender: ALEXION PHARMACEUTICALS
  Company Number: 202506USA019011US

PATIENT
  Sex: Female

DRUGS (1)
  1. OLAPARIB [Suspect]
     Active Substance: OLAPARIB
     Indication: Neoplasm malignant
     Dosage: 300 MILLIGRAM, BID
     Route: 061
     Dates: start: 202505

REACTIONS (3)
  - Neuropathy peripheral [Unknown]
  - Constipation [Unknown]
  - Dyschezia [Unknown]
